FAERS Safety Report 4712490-5 (Version None)
Quarter: 2005Q3

REPORT INFORMATION
  Report Type: 
  Country: None (occurrence: None)
  Receive Date: 20050711
  Receipt Date: 20050630
  Transmission Date: 20060218
  Serious: Yes (Hospitalization, Other)
  Sender: FDA-Public Use
  Company Number: 2005075584

PATIENT
  Age: 70 Year
  Sex: Female
  Weight: 123.832 kg

DRUGS (6)
  1. CELEBREX [Suspect]
     Indication: ARTHRITIS
     Dosage: 400 MG (200 MG, 2 IN 1 D), ORAL
     Route: 048
  2. ACETYLSALICYLIC ACID SRT [Concomitant]
  3. ACTOS [Concomitant]
  4. FUROSEMIDE (FUROSEMIDE) [Concomitant]
  5. COREG [Concomitant]
  6. CARDIAC THERAPY (CARDIAC THERAPY) [Concomitant]

REACTIONS (7)
  - BODY TEMPERATURE INCREASED [None]
  - CARDIAC FAILURE CONGESTIVE [None]
  - DIFFICULTY IN WALKING [None]
  - DRUG INEFFECTIVE [None]
  - NAUSEA [None]
  - STRESS [None]
  - TREMOR [None]
